FAERS Safety Report 9416748 (Version 1)
Quarter: 2013Q3

REPORT INFORMATION
  Report Type: Spontaneous
  Country: US (occurrence: US)
  Receive Date: 20130724
  Receipt Date: 20130724
  Transmission Date: 20140515
  Serious: No
  Sender: FDA-Public Use
  Company Number: US-GALDERMA-US-GDP-12415201

PATIENT
  Age: 51 Year
  Sex: Female
  Weight: 64 kg

DRUGS (5)
  1. ORACEA (DOXYCYCLINE, USP) CAPSULES 40 MG [Suspect]
     Indication: ROSACEA
     Route: 048
     Dates: start: 201207
  2. GREENSTONE [Concomitant]
     Indication: ROSACEA
     Route: 061
  3. PRAVASTATIN [Concomitant]
     Indication: BLOOD CHOLESTEROL INCREASED
     Route: 048
  4. ATENOLOL [Concomitant]
     Indication: HYPERTENSION
     Route: 048
  5. SPIRONOLACTONE [Concomitant]
     Indication: POLYURIA
     Route: 048

REACTIONS (2)
  - Condition aggravated [Unknown]
  - Drug ineffective [Unknown]
